FAERS Safety Report 13249029 (Version 1)
Quarter: 2017Q1

REPORT INFORMATION
  Report Type: Spontaneous
  Country: US (occurrence: US)
  Receive Date: 20170218
  Receipt Date: 20170218
  Transmission Date: 20170428
  Serious: No
  Sender: FDA-Public Use
  Company Number: US-ALLERGAN-1652137US

PATIENT
  Age: 87 Year
  Sex: Male
  Weight: 78.91 kg

DRUGS (1)
  1. RESTASIS [Suspect]
     Active Substance: CYCLOSPORINE
     Indication: PRODUCT USED FOR UNKNOWN INDICATION
     Route: 047

REACTIONS (3)
  - Cough [Not Recovered/Not Resolved]
  - Insomnia [Not Recovered/Not Resolved]
  - Lacrimation increased [Not Recovered/Not Resolved]
